FAERS Safety Report 10170968 (Version 1)
Quarter: 2014Q2

REPORT INFORMATION
  Report Type: Spontaneous
  Country: US (occurrence: None)
  Receive Date: 20140513
  Receipt Date: 20140513
  Transmission Date: 20141212
  Serious: Yes (Hospitalization)
  Sender: FDA-Public Use
  Company Number: None

PATIENT
  Age: 2 Year
  Sex: Male
  Weight: 10.6 kg

DRUGS (1)
  1. STOOL FROM HEALTHY DONOR [Suspect]
     Indication: CLOSTRIDIUM DIFFICILE INFECTION
     Dosage: 240 ML ONCE VIA COLONSCOPY
     Dates: start: 20140404

REACTIONS (2)
  - Platelet count decreased [None]
  - Petechiae [None]
